FAERS Safety Report 20450720 (Version 1)
Quarter: 2022Q1

REPORT INFORMATION
  Report Type: Spontaneous
  Country: US (occurrence: US)
  Receive Date: 20220209
  Receipt Date: 20220209
  Transmission Date: 20220424
  Serious: Yes (Life-Threatening, Hospitalization, Other)
  Sender: FDA-Public Use
  Company Number: None

PATIENT
  Age: 41 Year
  Sex: Female

DRUGS (1)
  1. NORGESTIMATE AND ETHINYL ESTRADIOL [Suspect]
     Active Substance: ETHINYL ESTRADIOL\NORGESTIMATE
     Indication: Abnormal uterine bleeding
     Dosage: UNK (PILLULES)
     Route: 048

REACTIONS (6)
  - Coronary artery thrombosis [Recovered/Resolved]
  - Embolism arterial [Recovered/Resolved]
  - Ventricular hypokinesia [Recovered/Resolved]
  - Arrhythmia [Recovered/Resolved]
  - Acute myocardial infarction [Recovered/Resolved]
  - Acute coronary syndrome [Recovered/Resolved]
